FAERS Safety Report 14409822 (Version 1)
Quarter: 2018Q1

REPORT INFORMATION
  Report Type: Spontaneous
  Country: US (occurrence: US)
  Receive Date: 20180119
  Receipt Date: 20180119
  Transmission Date: 20180509
  Serious: Yes (Other)
  Sender: FDA-Public Use
  Company Number: US-APOTEX-2018AP005305

PATIENT
  Age: 61 Year
  Sex: Male

DRUGS (8)
  1. SERTRALINE [Suspect]
     Active Substance: SERTRALINE HYDROCHLORIDE
     Indication: FRONTOTEMPORAL DEMENTIA
  2. PAROXETINE. [Suspect]
     Active Substance: PAROXETINE
     Indication: SEXUALLY INAPPROPRIATE BEHAVIOUR
     Dosage: UP TO 200 MG/D
     Route: 065
  3. QUETIAPINE. [Suspect]
     Active Substance: QUETIAPINE
     Indication: FRONTOTEMPORAL DEMENTIA
  4. RISPERIDONE. [Suspect]
     Active Substance: RISPERIDONE
     Indication: FRONTOTEMPORAL DEMENTIA
  5. SERTRALINE [Suspect]
     Active Substance: SERTRALINE HYDROCHLORIDE
     Indication: SEXUALLY INAPPROPRIATE BEHAVIOUR
     Dosage: UP TO 200 MG/D
     Route: 065
  6. QUETIAPINE. [Suspect]
     Active Substance: QUETIAPINE
     Indication: SEXUALLY INAPPROPRIATE BEHAVIOUR
     Dosage: 200 MG, QD
     Route: 065
  7. PAROXETINE. [Suspect]
     Active Substance: PAROXETINE
     Indication: FRONTOTEMPORAL DEMENTIA
  8. RISPERIDONE. [Suspect]
     Active Substance: RISPERIDONE
     Indication: SEXUALLY INAPPROPRIATE BEHAVIOUR
     Dosage: 3 MG, QD
     Route: 065

REACTIONS (4)
  - Drug ineffective [Unknown]
  - Sedation complication [Unknown]
  - Musculoskeletal stiffness [Unknown]
  - Tremor [Unknown]
